FAERS Safety Report 8076445-8 (Version None)
Quarter: 2012Q1

REPORT INFORMATION
  Report Type: 
  Country: None (occurrence: None)
  Receive Date: 20120127
  Receipt Date: 20120114
  Transmission Date: 20120608
  Serious: Yes (Hospitalization, Other)
  Sender: FDA-Public Use
  Company Number: PL-CELGENEUS-129-50794-11050038

PATIENT
  Sex: Female

DRUGS (5)
  1. RED BLOOD CELLS [Concomitant]
  2. VIDAZA [Suspect]
     Dosage: 100 MILLIGRAM
     Route: 058
     Dates: start: 20110501
  3. VIDAZA [Suspect]
     Dosage: 75 MILLIGRAM/SQ. METER
     Route: 058
     Dates: start: 20110112
  4. VIDAZA [Suspect]
     Dosage: 75 MILLIGRAM/SQ. METER
     Route: 058
     Dates: start: 20110323
  5. RED BLOOD CELLS [Concomitant]
     Indication: PANCYTOPENIA
     Route: 065

REACTIONS (13)
  - INJECTION SITE HAEMORRHAGE [None]
  - PERICARDITIS [None]
  - ENDOCARDITIS [None]
  - PYREXIA [None]
  - SEPSIS [None]
  - SEPTIC SHOCK [None]
  - ACUTE MYELOID LEUKAEMIA [None]
  - MYELODYSPLASTIC SYNDROME TRANSFORMATION [None]
  - ENTERITIS [None]
  - PNEUMONIA [None]
  - MYOCARDIAL INFARCTION [None]
  - PANCYTOPENIA [None]
  - INFECTION [None]
